FAERS Safety Report 20664900 (Version 1)
Quarter: 2022Q2

REPORT INFORMATION
  Report Type: Spontaneous
  Country: US (occurrence: US)
  Receive Date: 20220401
  Receipt Date: 20220401
  Transmission Date: 20220721
  Serious: No
  Sender: FDA-Public Use
  Company Number: US-PFIZER INC-2021881196

PATIENT
  Age: 76 Year

DRUGS (1)
  1. PREMPHASE [Suspect]
     Active Substance: ESTROGENS, CONJUGATED\MEDROXYPROGESTERONE ACETATE
     Dosage: UNK

REACTIONS (4)
  - Withdrawal syndrome [Unknown]
  - Anxiety [Unknown]
  - Stress [Unknown]
  - Frustration tolerance decreased [Unknown]
